FAERS Safety Report 5660472-1 (Version None)
Quarter: 2008Q1

REPORT INFORMATION
  Report Type: 
  Country: None (occurrence: None)
  Receive Date: 20080214
  Receipt Date: 20080102
  Transmission Date: 20080703
  Serious: No
  Sender: FDA-Public Use
  Company Number: WAES 0801USA00129

PATIENT

DRUGS (1)
  1. ISENTRESS [Suspect]
     Dosage: 400 MG/DAILY/PO
     Route: 048

REACTIONS (1)
  - NAUSEA [None]
